FAERS Safety Report 4391143-X (Version None)
Quarter: 2004Q2

REPORT INFORMATION
  Report Type: 
  Country: None (occurrence: None)
  Receive Date: 20040621
  Receipt Date: 20031201
  Transmission Date: 20050107
  Serious: Yes (Death)
  Sender: FDA-Public Use
  Company Number: USA-2003-0011604

PATIENT
  Age: 53 Year
  Sex: Female
  Weight: 77.6 kg

DRUGS (17)
  1. OXYCODONE HCL [Suspect]
  2. HYDROCODONE BITARTRATE [Suspect]
  3. FENTANYL [Suspect]
  4. ACETAMINOPHEN [Suspect]
  5. CAFFEINE (CAFFEINE) [Suspect]
  6. MEPROBAMATE [Suspect]
  7. PROMETHAZINE [Suspect]
  8. TRAZODONE HCL [Suspect]
  9. ALPRAZOLAM [Suspect]
  10. CITALOPRAM (CITALOPRAM) [Suspect]
  11. DESIPRAMINE HCL [Suspect]
  12. IMIPRAMINE [Suspect]
  13. LAMOTRIGINE [Suspect]
  14. NICOTINE [Suspect]
  15. CARISOPRODOL [Suspect]
  16. DEXTROMETHORPHAN (DEXTROMETHORPHAN) [Suspect]
  17. GABAPENTIN [Suspect]

REACTIONS (1)
  - OVERDOSE [None]
